FAERS Safety Report 21513563 (Version 2)
Quarter: 2022Q4

REPORT INFORMATION
  Report Type: Spontaneous
  Country: US (occurrence: US)
  Receive Date: 20221027
  Receipt Date: 20221104
  Transmission Date: 20230113
  Serious: No
  Sender: FDA-Public Use
  Company Number: US-BAUSCH-BL-2022-024239

PATIENT
  Age: 34 Year
  Sex: Female
  Weight: 59.020 kg

DRUGS (3)
  1. ALTRENO [Suspect]
     Active Substance: TRETINOIN
     Indication: Acne
     Dosage: ONE APPLICATION TO THE FACE ONCE DAILY
     Route: 061
     Dates: start: 20221013, end: 20221015
  2. ALTRENO [Suspect]
     Active Substance: TRETINOIN
  3. CLINDAMYCIN PHOSPHATE [Concomitant]
     Active Substance: CLINDAMYCIN PHOSPHATE
     Indication: Product used for unknown indication

REACTIONS (4)
  - Rash macular [Recovered/Resolved]
  - Application site erythema [Recovered/Resolved]
  - Application site pain [Recovered/Resolved]
  - Application site exfoliation [Recovered/Resolved]

NARRATIVE: CASE EVENT DATE: 20221013
